FAERS Safety Report 10039587 (Version 2)
Quarter: 2014Q1

REPORT INFORMATION
  Report Type: Spontaneous
  Country: CA (occurrence: CA)
  Receive Date: 20140326
  Receipt Date: 20140326
  Transmission Date: 20141002
  Serious: Yes (Life-Threatening, Other)
  Sender: FDA-Public Use
  Company Number: CA-PFIZER INC-2014052540

PATIENT
  Age: 34 Year
  Sex: Female
  Weight: 99.77 kg

DRUGS (6)
  1. CHAMPIX [Suspect]
     Indication: SMOKING CESSATION THERAPY
     Dosage: 0.5 MG, UNK
     Route: 048
     Dates: start: 20140103, end: 20140109
  2. CHAMPIX [Suspect]
     Dosage: 1 MG, 2X/DAY
     Route: 048
     Dates: start: 20140110, end: 20140217
  3. HYDROMORPH CONTIN [Concomitant]
     Indication: PAIN
     Dosage: 9 MG, 3X/DAY
  4. HYDROMORPH CONTIN [Concomitant]
     Dosage: 3 MG, 1X/DAY AT BEDTIME
  5. RATIO-OXYCOCET [Concomitant]
     Indication: PAIN
     Dosage: 325 MG/5 MG 2 TABLETS, 3X/DAY
  6. ZOPICLONE [Concomitant]
     Indication: INSOMNIA
     Dosage: 7.5 MG, 1X/DAY AT BEDTIME

REACTIONS (11)
  - Suicidal ideation [Recovered/Resolved]
  - Depressive symptom [Recovered/Resolved]
  - Personality change [Recovered/Resolved]
  - Irritability [Recovered/Resolved]
  - Depressed mood [Recovered/Resolved]
  - Fatigue [Recovered/Resolved]
  - Disturbance in attention [Recovered/Resolved]
  - Panic attack [Recovered/Resolved]
  - Crying [Recovered/Resolved]
  - Tremor [Recovered/Resolved]
  - Anxiety [Recovered/Resolved]
